FAERS Safety Report 4395998-4 (Version None)
Quarter: 2004Q2

REPORT INFORMATION
  Report Type: 
  Country: None (occurrence: None)
  Receive Date: 20040621
  Receipt Date: 20031117
  Transmission Date: 20050107
  Serious: Yes (Other)
  Sender: FDA-Public Use
  Company Number: USA-2003-0010855

PATIENT
  Age: 41 Year
  Sex: Male

DRUGS (7)
  1. OXYCONTIN [Suspect]
     Indication: PAIN
     Dosage: UNK MG, UNK, UNKNOWN
     Route: 065
  2. XANAX [Concomitant]
  3. CELEXA [Concomitant]
  4. ZOCOR [Concomitant]
  5. PHENERGAN [Concomitant]
  6. GLUCOPHAGE [Concomitant]
  7. TRAZODONE HCL [Concomitant]

REACTIONS (20)
  - ADVERSE DRUG REACTION [None]
  - ANXIETY [None]
  - CHEST DISCOMFORT [None]
  - COUGH [None]
  - DEPRESSION [None]
  - DRUG DEPENDENCE [None]
  - DRUG INEFFECTIVE [None]
  - DRUG WITHDRAWAL SYNDROME [None]
  - EAR PAIN [None]
  - HALLUCINATIONS, MIXED [None]
  - HYPOAESTHESIA [None]
  - NASAL CONGESTION [None]
  - NAUSEA [None]
  - OEDEMA PERIPHERAL [None]
  - PAIN [None]
  - PHARYNGITIS [None]
  - PRURITUS [None]
  - PYREXIA [None]
  - STRESS SYMPTOMS [None]
  - VOMITING [None]
